FAERS Safety Report 18973426 (Version 1)
Quarter: 2021Q1

REPORT INFORMATION
  Report Type: Spontaneous
  Country: US (occurrence: US)
  Receive Date: 20210305
  Receipt Date: 20210305
  Transmission Date: 20210420
  Serious: Yes (Hospitalization, Other)
  Sender: FDA-Public Use
  Company Number: US-GLAXOSMITHKLINE-US2021GSK057960

PATIENT
  Sex: Male

DRUGS (2)
  1. LAMICTAL [Suspect]
     Active Substance: LAMOTRIGINE
     Dosage: 150 MG, QD
     Route: 048
  2. LAMICTAL [Suspect]
     Active Substance: LAMOTRIGINE
     Indication: EPILEPSY
     Dosage: 75 MG, BID
     Route: 048

REACTIONS (10)
  - Panniculitis [Unknown]
  - Dermatitis acneiform [Unknown]
  - Pain of skin [Unknown]
  - Erythema [Unknown]
  - Psoriasis [Unknown]
  - Skin wound [Unknown]
  - Rash maculo-papular [Unknown]
  - Skin lesion [Unknown]
  - Dermatitis [Unknown]
  - Rash [Unknown]
